FAERS Safety Report 7388854-0 (Version None)
Quarter: 2011Q2

REPORT INFORMATION
  Report Type: 
  Country: None (occurrence: None)
  Receive Date: 20110401
  Receipt Date: 20110323
  Transmission Date: 20111010
  Serious: Yes (Life-Threatening, Hospitalization)
  Sender: FDA-Public Use
  Company Number: JP-NOVOPROD-325087

PATIENT
  Age: 60 Year
  Sex: Female
  Weight: 40 kg

DRUGS (10)
  1. LASIX [Concomitant]
     Indication: CIRRHOSIS ALCOHOLIC
     Dosage: 20 MG, QD
     Route: 048
     Dates: start: 20100601
  2. ALDACTONE [Concomitant]
     Indication: CIRRHOSIS ALCOHOLIC
     Dosage: 50 MG, QD
     Route: 048
     Dates: start: 20100601
  3. NOVORAPID 30 MIX CHU FLEXPEN [Suspect]
     Indication: TYPE 2 DIABETES MELLITUS
     Dosage: 36 U, QD
     Route: 058
     Dates: start: 20100722
  4. NOVORAPID 30 MIX CHU FLEXPEN [Suspect]
     Dosage: 24 U, QD BEFORE BREAKFAST
     Route: 058
     Dates: start: 20101123, end: 20101213
  5. ATARAX-P                           /00058402/ [Concomitant]
     Indication: INSOMNIA
     Dosage: 25 MG, QD
     Route: 048
     Dates: start: 20100901
  6. OMEPRAZON [Concomitant]
     Indication: REFLUX OESOPHAGITIS
     Dosage: 10 MG, QD
     Route: 048
     Dates: start: 20100701
  7. LENDORMIN [Concomitant]
     Indication: INSOMNIA
     Dosage: 1 TAB, PRN
     Route: 048
     Dates: start: 20100801
  8. LIVACT                             /00847901/ [Concomitant]
     Indication: CIRRHOSIS ALCOHOLIC
     Dosage: 12.45 G, QD
     Route: 048
     Dates: start: 20100601
  9. URSO                               /00465701/ [Concomitant]
     Indication: CIRRHOSIS ALCOHOLIC
     Dosage: 600 MG, QD
     Route: 048
     Dates: start: 20100601
  10. MONILAC [Concomitant]
     Indication: CIRRHOSIS ALCOHOLIC
     Dosage: 30 ML, QD
     Route: 048
     Dates: start: 20100801

REACTIONS (2)
  - HYPOGLYCAEMIC UNCONSCIOUSNESS [None]
  - STRESS CARDIOMYOPATHY [None]
